FAERS Safety Report 20160169 (Version 4)
Quarter: 2022Q1

REPORT INFORMATION
  Report Type: Spontaneous
  Country: US (occurrence: US)
  Receive Date: 20211208
  Receipt Date: 20220127
  Transmission Date: 20220424
  Serious: Yes (Hospitalization)
  Sender: FDA-Public Use
  Company Number: US-ALNYLAM PHARMACEUTICALS, INC.-ALN-2021-003244

PATIENT

DRUGS (28)
  1. GIVLAARI [Suspect]
     Active Substance: GIVOSIRAN SODIUM
     Indication: Porphyria acute
     Dosage: UNK, MONTHLY
     Route: 058
     Dates: start: 20200103
  2. LUBIPROSTONE [Suspect]
     Active Substance: LUBIPROSTONE
     Indication: Gastrointestinal disorder
     Dosage: UNK
  3. MORPHINE [Concomitant]
     Active Substance: MORPHINE
     Indication: Product used for unknown indication
     Dosage: 4 MILLIGRAM, ER, TID
     Dates: start: 20071117
  4. DULOXETINE [Concomitant]
     Active Substance: DULOXETINE
     Indication: Depression
     Dosage: 30 MILLIGRAM, TID
     Route: 048
     Dates: start: 20071117
  5. GABAPENTIN [Concomitant]
     Active Substance: GABAPENTIN
     Indication: Product used for unknown indication
     Dosage: 1200 MILLIGRAM, TID
     Route: 048
     Dates: start: 20071117
  6. DICYCLOMINE [Concomitant]
     Active Substance: DICYCLOMINE HYDROCHLORIDE
     Indication: Product used for unknown indication
     Dosage: 10 MILLIGRAM, 2 TABLETS, QID
     Route: 048
     Dates: start: 20071117
  7. TIZANIDINE [Concomitant]
     Active Substance: TIZANIDINE
     Indication: Muscle spasms
     Dosage: 4 MILLIGRAM, QID (PRN)
     Route: 048
     Dates: start: 20071117
  8. DOCUSATE [Concomitant]
     Active Substance: DOCUSATE
     Indication: Product used for unknown indication
     Dosage: 100 MILLIGRAM, BID
     Route: 048
     Dates: start: 20071117
  9. ONDANSETRON [Concomitant]
     Active Substance: ONDANSETRON
     Indication: Nausea
     Dosage: 8 MILLIGRAM, TID, PRN
     Dates: start: 20071117
  10. ONDANSETRON [Concomitant]
     Active Substance: ONDANSETRON
     Indication: Vomiting
     Dosage: 4 MG/ 2 ML, Q6H, PRN
     Route: 058
  11. TRAZODONE [Concomitant]
     Active Substance: TRAZODONE HYDROCHLORIDE
     Indication: Insomnia
     Dosage: 50 MILLIGRAM, AT NIGHT (QHS-PRN)
     Route: 048
     Dates: start: 20071117
  12. TRAZODONE [Concomitant]
     Active Substance: TRAZODONE HYDROCHLORIDE
     Indication: Post-traumatic stress disorder
  13. HEMATIN [Concomitant]
     Active Substance: HEMATIN
     Indication: Product used for unknown indication
     Dosage: 350 MILLILITER, ONCE 2 WEEKS, IF NOT SICK AND NOT IN HOSPITAL
     Dates: start: 20071117
  14. HEMATIN [Concomitant]
     Active Substance: HEMATIN
     Dosage: 1 DOSE OF HEMATIN DAILY FOR 4 DAYS IN A ROW, IF IN HOSPITAL
  15. IBUPROFEN [Concomitant]
     Active Substance: IBUPROFEN
     Indication: Product used for unknown indication
     Dosage: 800 MILLIGRAM, TID
     Dates: start: 20071117
  16. ACETAMINOPHEN [Concomitant]
     Active Substance: ACETAMINOPHEN
     Indication: Pain
     Dosage: 975 MILLIGRAM, EVERY 6 HOURS (PRN)
     Route: 048
  17. ACETAMINOPHEN [Concomitant]
     Active Substance: ACETAMINOPHEN
     Indication: Pyrexia
  18. ALBUTEROL [Concomitant]
     Active Substance: ALBUTEROL
     Indication: Dyspnoea
     Dosage: 2 PUFFS, QID (PRN)
     Route: 048
  19. AMLODIPINE [Concomitant]
     Active Substance: AMLODIPINE BESYLATE
     Indication: Hypertension
     Dosage: 10 MILLIGRAM, QD
  20. BENZONATATE [Concomitant]
     Active Substance: BENZONATATE
     Indication: Cough
     Dosage: 100 MILLIGRAM, EVERY 12 HOURS (PRN)
     Route: 048
  21. CARVEDILOL [Concomitant]
     Active Substance: CARVEDILOL
     Indication: Hypertension
     Dosage: 6.25 MILLIGRAM, BID
     Route: 048
  22. Dextromethorphan hydrobromide monohydrate w/Guaifenesin [Concomitant]
     Indication: Cough
     Dosage: 10 MILLILITER, Q6H (PRN)
     Route: 048
  23. LIDOCAINE [Concomitant]
     Active Substance: LIDOCAINE
     Indication: Product used for unknown indication
     Dosage: 1 UNK, PRN
     Route: 062
  24. MELATONIN [Concomitant]
     Active Substance: MELATONIN
     Indication: Sleep disorder
     Dosage: 10 MILLIGRAM, QHS PRN
  25. SODIUM CHLORIDE [Concomitant]
     Active Substance: SODIUM CHLORIDE
     Indication: Fluid imbalance
     Dosage: UNK
  26. NALOXONE [Concomitant]
     Active Substance: NALOXONE
     Indication: Respiratory rate decreased
     Dosage: 1 UNK, PRN
     Route: 045
  27. POLYETHYLENE GLYCOL [Concomitant]
     Active Substance: POLYETHYLENE GLYCOL
     Indication: Constipation
     Dosage: 17 GRAM, BID
     Route: 048
  28. DEXTROSE [Concomitant]
     Active Substance: DEXTROSE
     Indication: Porphyria
     Dosage: UNK UNK, WEEKLY

REACTIONS (8)
  - Porphyria acute [Unknown]
  - COVID-19 [Recovered/Resolved]
  - Stress [Unknown]
  - Cellulitis [Unknown]
  - Fall [Unknown]
  - Injection site pain [Unknown]
  - Injection site bruising [Unknown]
  - Injection site erythema [Unknown]

NARRATIVE: CASE EVENT DATE: 20210104
